FAERS Safety Report 11835973 (Version 2)
Quarter: 2016Q1

REPORT INFORMATION
  Report Type: Spontaneous
  Country: JP (occurrence: JP)
  Receive Date: 20151215
  Receipt Date: 20160119
  Transmission Date: 20160525
  Serious: Yes (Hospitalization, Other)
  Sender: FDA-Public Use
  Company Number: JP-AMGEN-JPNSP2015114414

PATIENT
  Age: 58 Year
  Sex: Female
  Weight: 57 kg

DRUGS (12)
  1. ZANTAC [Concomitant]
     Active Substance: RANITIDINE HYDROCHLORIDE
     Indication: GASTRITIS PROPHYLAXIS
     Dosage: 75 MG, QD
     Route: 048
     Dates: start: 20121031
  2. ARIMIDEX [Concomitant]
     Active Substance: ANASTROZOLE
     Indication: METASTASES TO BONE
     Dosage: 1 MG, QD
     Route: 048
     Dates: start: 20100413
  3. NOLVADEX                           /00388702/ [Concomitant]
     Indication: METASTASES TO BONE
     Dosage: 20 MG, QD
     Route: 048
     Dates: start: 20141029
  4. LOXOPROFEN                         /00890702/ [Concomitant]
     Active Substance: LOXOPROFEN
     Indication: PAIN
     Dosage: 60 MG, QD
     Route: 048
     Dates: start: 20121031
  5. ARIMIDEX [Concomitant]
     Active Substance: ANASTROZOLE
     Indication: SURGERY
  6. FLOMOX                             /01418603/ [Concomitant]
     Indication: URINARY TRACT INFLAMMATION
     Dosage: 100 MG, TID
     Route: 048
     Dates: start: 20131022, end: 20131028
  7. ONEALFA [Concomitant]
     Active Substance: ALFACALCIDOL
     Indication: VITAMIN SUPPLEMENTATION
     Dosage: 4 MUG, BID
     Route: 048
     Dates: start: 20120214, end: 20130805
  8. RANMARK [Suspect]
     Active Substance: DENOSUMAB
     Indication: METASTASES TO BONE
     Dosage: 120 MG, Q4WK
     Route: 058
     Dates: start: 20120613
  9. DENOTAS [Concomitant]
     Active Substance: CALCIUM CARBONATE\CHOLECALCIFEROL\MAGNESIUM CARBONATE
     Indication: HYPOCALCAEMIA
     Dosage: 2 DF, QD
     Route: 048
     Dates: start: 20121031
  10. NOLVADEX                           /00388702/ [Concomitant]
     Indication: SURGERY
  11. CALCIUM LACTATE [Concomitant]
     Active Substance: CALCIUM LACTATE
     Indication: MINERAL SUPPLEMENTATION
     Dosage: 4 G, QD
     Route: 048
     Dates: start: 20120214, end: 20130128
  12. RANMARK [Suspect]
     Active Substance: DENOSUMAB
     Indication: SURGERY

REACTIONS (2)
  - Atypical femur fracture [Not Recovered/Not Resolved]
  - Pseudarthrosis [Not Recovered/Not Resolved]

NARRATIVE: CASE EVENT DATE: 20151026
